FAERS Safety Report 8456032-X (Version None)
Quarter: 2012Q2

REPORT INFORMATION
  Report Type: 
  Country: None (occurrence: None)
  Receive Date: 20120621
  Receipt Date: 20120615
  Transmission Date: 20120825
  Serious: Yes (Hospitalization)
  Sender: FDA-Public Use
  Company Number: PHHY2012DE015502

PATIENT
  Sex: Female

DRUGS (4)
  1. ANALGESICS [Concomitant]
  2. PANTOPRAZOLE [Concomitant]
     Route: 048
  3. ZOMETA [Suspect]
     Indication: BREAST CANCER METASTATIC
     Dosage: 4MG/5ML, EVERY 4 WEEKS
     Route: 042
     Dates: start: 20100901
  4. EUTHYROX [Concomitant]
     Indication: HYPOTHYROIDISM
     Route: 048

REACTIONS (1)
  - DEVICE DISLOCATION [None]
